FAERS Safety Report 23037875 (Version 3)
Quarter: 2023Q4

REPORT INFORMATION
  Report Type: Spontaneous
  Country: US (occurrence: US)
  Receive Date: 20231006
  Receipt Date: 20231123
  Transmission Date: 20240110
  Serious: Yes (Death, Other)
  Sender: FDA-Public Use
  Company Number: US-BRISTOL-MYERS SQUIBB COMPANY-2023-141063

PATIENT
  Age: 82 Year
  Sex: Male
  Weight: 94.34 kg

DRUGS (1)
  1. REVLIMID [Suspect]
     Active Substance: LENALIDOMIDE
     Indication: Mantle cell lymphoma
     Dosage: 3EKSON,1WKOFF
     Route: 048
     Dates: start: 20231018

REACTIONS (1)
  - Death [Fatal]

NARRATIVE: CASE EVENT DATE: 20231027
